FAERS Safety Report 17097976 (Version 1)
Quarter: 2019Q4

REPORT INFORMATION
  Report Type: Report from Study
  Country: US (occurrence: US)
  Receive Date: 20191202
  Receipt Date: 20191202
  Transmission Date: 20200122
  Serious: No
  Sender: FDA-Public Use
  Company Number: NVSC2019US054696

PATIENT
  Age: 30 Year
  Sex: Male

DRUGS (2)
  1. TOMYCINE [Suspect]
     Active Substance: TOBRAMYCIN
     Indication: CYSTIC FIBROSIS
     Dosage: UNK
     Route: 065
  2. AZTREONAM LYSINE [Suspect]
     Active Substance: AZTREONAM LYSINE
     Indication: CYSTIC FIBROSIS
     Dosage: 75 MILLIGRAM, TID (28 DAYS ON AND 28 DAYS OFF)
     Route: 065
     Dates: start: 20150623

REACTIONS (2)
  - Productive cough [Unknown]
  - Product dose omission [Recovered/Resolved]
